FAERS Safety Report 14354871 (Version 4)
Quarter: 2020Q1

REPORT INFORMATION
  Report Type: Spontaneous
  Country: FR (occurrence: FR)
  Receive Date: 20180105
  Receipt Date: 20200107
  Transmission Date: 20200409
  Serious: Yes (Death, Disabling, Other)
  Sender: FDA-Public Use
  Company Number: FR-AUROBINDO-AUR-APL-2018-000327

PATIENT
  Sex: Male

DRUGS (2)
  1. FINASTERIDE. [Suspect]
     Active Substance: FINASTERIDE
     Indication: ALOPECIA
     Dosage: 1 MILLIGRAM
     Route: 065
  2. PROPECIA [Suspect]
     Active Substance: FINASTERIDE
     Indication: ALOPECIA
     Dosage: UNK
     Route: 048

REACTIONS (14)
  - Sexual dysfunction [Not Recovered/Not Resolved]
  - Behaviour disorder [Unknown]
  - Anxiety [Unknown]
  - Suicide attempt [Unknown]
  - Asthenia [Unknown]
  - Depression [Unknown]
  - Completed suicide [Fatal]
  - Insomnia [Unknown]
  - Abnormal behaviour [Unknown]
  - Physical disability [Not Recovered/Not Resolved]
  - Cognitive disorder [Not Recovered/Not Resolved]
  - Nightmare [Unknown]
  - Adverse drug reaction [Not Recovered/Not Resolved]
  - Suicidal ideation [Unknown]
